FAERS Safety Report 10193077 (Version 1)
Quarter: 2014Q2

REPORT INFORMATION
  Report Type: Spontaneous
  Country: US (occurrence: US)
  Receive Date: 20140524
  Receipt Date: 20140524
  Transmission Date: 20141212
  Serious: No
  Sender: FDA-Public Use
  Company Number: US-009507513-1405USA010783

PATIENT
  Age: 24 Year
  Sex: Female

DRUGS (2)
  1. NUVARING [Suspect]
     Indication: CONTRACEPTION
     Dosage: UNK
     Route: 067
     Dates: start: 20140515
  2. IBUPROFEN [Concomitant]
     Dosage: UNK

REACTIONS (5)
  - Blood urine [Unknown]
  - Mood swings [Unknown]
  - Abdominal pain upper [Unknown]
  - Metrorrhagia [Unknown]
  - Haemorrhage [Unknown]
